FAERS Safety Report 15235518 (Version 1)
Quarter: 2018Q3

REPORT INFORMATION
  Report Type: Spontaneous
  Country: US (occurrence: US)
  Receive Date: 20180803
  Receipt Date: 20180803
  Transmission Date: 20181010
  Serious: No
  Sender: FDA-Public Use
  Company Number: US-BAYER-2018-138957

PATIENT
  Age: 80 Year
  Sex: Male
  Weight: 85 kg

DRUGS (12)
  1. MIRALAX [Suspect]
     Active Substance: POLYETHYLENE GLYCOL 3350
     Indication: GASTROINTESTINAL DISORDER
     Dosage: 1 DF, QD
     Route: 048
  2. CELEBREX [Concomitant]
     Active Substance: CELECOXIB
  3. VERAPAMIL [Concomitant]
     Active Substance: VERAPAMIL HYDROCHLORIDE
  4. ALLOPURINOL. [Concomitant]
     Active Substance: ALLOPURINOL
  5. CIPRO [Concomitant]
     Active Substance: CIPROFLOXACIN HYDROCHLORIDE
  6. FINASTERIDE. [Concomitant]
     Active Substance: FINASTERIDE
  7. ALFUZOSIN [Concomitant]
     Active Substance: ALFUZOSIN
  8. ROSUVASTATIN CALCIUM. [Concomitant]
     Active Substance: ROSUVASTATIN CALCIUM
  9. BAYER LOW DOSE [Suspect]
     Active Substance: ASPIRIN
     Indication: PROPHYLAXIS
     Dosage: 1 DF, QD
     Route: 048
  10. PREVACID [Concomitant]
     Active Substance: LANSOPRAZOLE
  11. FAMOTIDINE. [Concomitant]
     Active Substance: FAMOTIDINE
  12. LATANOPROST. [Concomitant]
     Active Substance: LATANOPROST

REACTIONS (3)
  - Incorrect drug administration duration [Unknown]
  - Product use in unapproved indication [None]
  - Product prescribing issue [Unknown]
